FAERS Safety Report 23755774 (Version 1)
Quarter: 2024Q2

REPORT INFORMATION
  Report Type: Spontaneous
  Country: FR (occurrence: FR)
  Receive Date: 20240418
  Receipt Date: 20240418
  Transmission Date: 20240715
  Serious: Yes (Other)
  Sender: FDA-Public Use
  Company Number: FR-Accord-281052

PATIENT
  Age: 29 Year
  Sex: Female

DRUGS (8)
  1. AMITRIPTYLINE [Suspect]
     Active Substance: AMITRIPTYLINE
     Indication: Trigeminal neuropathy
     Dosage: SUFFICIENT DOSES OVER SEVERAL MONTHS
  2. PREGABALIN [Suspect]
     Active Substance: PREGABALIN
     Indication: Trigeminal neuropathy
  3. DULOXETINE [Suspect]
     Active Substance: DULOXETINE
     Indication: Trigeminal neuropathy
  4. CLONAZEPAM [Suspect]
     Active Substance: CLONAZEPAM
     Indication: Trigeminal neuropathy
     Dosage: 2.5 MG/ML (6 DROPS THREE TIMES DAILY)
  5. CARBAMAZEPINE [Suspect]
     Active Substance: CARBAMAZEPINE
     Indication: Trigeminal neuropathy
     Dosage: SUFFICIENT DOSES OVER SEVERAL MONTHS
  6. VENLAFAXINE [Suspect]
     Active Substance: VENLAFAXINE HYDROCHLORIDE
     Indication: Trigeminal neuropathy
     Dosage: SUFFICIENT DOSES OVER SEVERAL MONTHS
  7. DULOXETINE [Suspect]
     Active Substance: DULOXETINE
     Indication: Trigeminal neuropathy
     Dosage: SUFFICIENT DOSES OVER SEVERAL MONTHS
  8. VENLAFAXINE [Suspect]
     Active Substance: VENLAFAXINE HYDROCHLORIDE
     Indication: Trigeminal neuropathy
     Dosage: SUFFICIENT DOSES OVER SEVERAL MONTHS

REACTIONS (7)
  - Treatment failure [Unknown]
  - Off label use [Unknown]
  - Disturbance in attention [Unknown]
  - Fatigue [Unknown]
  - Impaired quality of life [Unknown]
  - Amnesia [Unknown]
  - Weight increased [Unknown]
